FAERS Safety Report 7397067-8 (Version None)
Quarter: 2011Q2

REPORT INFORMATION
  Report Type: 
  Country: None (occurrence: None)
  Receive Date: 20110406
  Receipt Date: 20110329
  Transmission Date: 20111010
  Serious: Yes (Hospitalization)
  Sender: FDA-Public Use
  Company Number: A0773156A

PATIENT
  Age: 56 Year
  Sex: Female
  Weight: 89.1 kg

DRUGS (9)
  1. CLONAZEPAM [Concomitant]
  2. TAZORAC [Concomitant]
  3. SYNTHROID [Concomitant]
  4. DEPAKOTE [Concomitant]
  5. PREMARIN [Concomitant]
  6. CLOBETASOL PROPIONATE [Concomitant]
  7. AVANDIA [Suspect]
     Indication: DIABETES MELLITUS
     Dosage: 4MG PER DAY
     Route: 048
     Dates: start: 19991210, end: 20011101
  8. LORAZEPAM [Concomitant]
  9. EFFEXOR [Concomitant]

REACTIONS (3)
  - CONGESTIVE CARDIOMYOPATHY [None]
  - CARDIAC FAILURE CONGESTIVE [None]
  - CORONARY ARTERY DISEASE [None]
